FAERS Safety Report 12485692 (Version 38)
Quarter: 2022Q2

REPORT INFORMATION
  Report Type: Report from Study
  Country: CA (occurrence: CA)
  Receive Date: 20160621
  Receipt Date: 20220427
  Transmission Date: 20220721
  Serious: Yes (Death, Hospitalization, Other)
  Sender: FDA-Public Use
  Company Number: PHHY2011CA33410

PATIENT
  Age: 69 Year
  Sex: Female

DRUGS (14)
  1. SANDOSTATIN LAR DEPOT [Suspect]
     Active Substance: OCTREOTIDE ACETATE
     Indication: Carcinoid tumour
     Dosage: 20 MG, QMO (EVERY 4 WEEKS)
     Route: 030
     Dates: start: 20110216, end: 20120803
  2. SANDOSTATIN LAR DEPOT [Suspect]
     Active Substance: OCTREOTIDE ACETATE
     Dosage: 30 MG, QMO (EVERY 4 WEEKS)
     Route: 030
     Dates: start: 20110216
  3. SANDOSTATIN LAR DEPOT [Suspect]
     Active Substance: OCTREOTIDE ACETATE
     Dosage: 30 MG, QMO (EVERY 4 WEEKS)
     Route: 030
     Dates: start: 20120905
  4. SANDOSTATIN [Suspect]
     Active Substance: OCTREOTIDE ACETATE
     Indication: Carcinoid tumour
     Dosage: UNK, QD (TEST DOSE)
     Route: 058
     Dates: start: 20101229, end: 20101229
  5. SANDOSTATIN [Suspect]
     Active Substance: OCTREOTIDE ACETATE
  6. SANDOSTATIN [Suspect]
     Active Substance: OCTREOTIDE ACETATE
  7. AFINITOR [Suspect]
     Active Substance: EVEROLIMUS
     Indication: Neuroendocrine tumour
     Dosage: 10 MG, QD
     Route: 048
     Dates: start: 20160812
  8. METOPROLOL [Suspect]
     Active Substance: METOPROLOL
     Indication: Product used for unknown indication
     Dosage: 25 MG, BID
     Route: 065
  9. CALCIUM [Suspect]
     Active Substance: CALCIUM
     Indication: Product used for unknown indication
     Dosage: UNK
     Route: 065
  10. NEUPOGEN [Concomitant]
     Active Substance: FILGRASTIM
     Indication: Product used for unknown indication
     Dosage: UNK
     Route: 065
     Dates: start: 201701, end: 2019
  11. HYDROMORPHONE [Concomitant]
     Active Substance: HYDROMORPHONE
     Indication: Product used for unknown indication
     Dosage: 3 MG, BID
     Route: 048
  12. FILGRASTIM [Concomitant]
     Active Substance: FILGRASTIM
     Indication: Product used for unknown indication
     Dosage: UNK
     Route: 065
     Dates: start: 2019
  13. FUROSEMIDE [Concomitant]
     Active Substance: FUROSEMIDE
     Indication: Product used for unknown indication
     Dosage: 40 MG
     Route: 065
     Dates: start: 20210705
  14. ELIQUIS [Concomitant]
     Active Substance: APIXABAN
     Indication: Product used for unknown indication
     Dosage: 1 DF, BID
     Route: 065
     Dates: start: 20200815

REACTIONS (60)
  - Death [Fatal]
  - Metastases to liver [Unknown]
  - Neurogenic shock [Unknown]
  - Neoplasm [Unknown]
  - Blood pressure increased [Unknown]
  - Alopecia [Unknown]
  - Malignant neoplasm progression [Unknown]
  - Carcinoid tumour [Unknown]
  - Diarrhoea [Not Recovered/Not Resolved]
  - Metastases to bone [Unknown]
  - Recurrent cancer [Unknown]
  - Lumbar vertebral fracture [Unknown]
  - Mouth ulceration [Unknown]
  - Cardiac fibrillation [Unknown]
  - Atrial fibrillation [Unknown]
  - Cataract [Unknown]
  - Loss of consciousness [Unknown]
  - Metastases to thorax [Unknown]
  - Metastases to chest wall [Unknown]
  - Joint swelling [Unknown]
  - Peripheral coldness [Unknown]
  - Body temperature decreased [Unknown]
  - Feeling cold [Unknown]
  - Abdominal mass [Unknown]
  - Bone formation decreased [Unknown]
  - Osteoporosis [Unknown]
  - Back pain [Unknown]
  - Inflammation [Unknown]
  - Contusion [Unknown]
  - Oedema [Unknown]
  - Tenderness [Unknown]
  - Erythema [Unknown]
  - Weight decreased [Unknown]
  - Peripheral swelling [Unknown]
  - Sputum discoloured [Unknown]
  - Pain [Unknown]
  - Dyschromatopsia [Unknown]
  - Oedema peripheral [Unknown]
  - Ocular neoplasm [Unknown]
  - Flushing [Not Recovered/Not Resolved]
  - Pelvic pain [Unknown]
  - Blood urine present [Unknown]
  - Pelvic neoplasm [Unknown]
  - Fall [Unknown]
  - Platelet count decreased [Unknown]
  - Frequent bowel movements [Unknown]
  - Flatulence [Not Recovered/Not Resolved]
  - Heart rate decreased [Unknown]
  - Decreased appetite [Unknown]
  - Hypertension [Unknown]
  - Asthenia [Unknown]
  - Nausea [Unknown]
  - Tachycardia [Unknown]
  - Injection site mass [Unknown]
  - Injection site pain [Unknown]
  - Dizziness [Unknown]
  - Fatigue [Unknown]
  - Palpitations [Unknown]
  - Needle issue [Unknown]
  - Product deposit [Unknown]

NARRATIVE: CASE EVENT DATE: 20151021
